FAERS Safety Report 6828244-X (Version None)
Quarter: 2010Q3

REPORT INFORMATION
  Report Type: 
  Country: None (occurrence: None)
  Receive Date: 20100709
  Receipt Date: 20070201
  Transmission Date: 20110219
  Serious: No
  Sender: FDA-Public Use
  Company Number: US-PFIZER INC-2007009620

PATIENT
  Sex: Female
  Weight: 86.18 kg

DRUGS (7)
  1. CHANTIX [Suspect]
     Dates: start: 20070124, end: 20070131
  2. VERAPAMIL [Concomitant]
  3. LASIX [Concomitant]
  4. POTASSIUM [Concomitant]
  5. PRILOSEC [Concomitant]
     Indication: HIATUS HERNIA
  6. TIOTROPIUM BROMIDE [Concomitant]
  7. CALCIUM CARBONATE [Concomitant]
     Indication: PARATHYROID DISORDER

REACTIONS (3)
  - ABDOMINAL PAIN UPPER [None]
  - NAUSEA [None]
  - VOMITING [None]
